FAERS Safety Report 5950779-2 (Version None)
Quarter: 2008Q4

REPORT INFORMATION
  Report Type: 
  Country: None (occurrence: None)
  Receive Date: 20081112
  Receipt Date: 20081105
  Transmission Date: 20090506
  Serious: Yes (Hospitalization)
  Sender: FDA-Public Use
  Company Number: BE-B.I. PHARMACEUTICALS,INC./RIDGEFIELD-2008-BL-00265BL

PATIENT
  Age: 80 Year
  Sex: Female

DRUGS (2)
  1. MOBIC [Suspect]
     Indication: PAIN
     Route: 048
  2. VOLTAREN [Concomitant]
     Indication: PAIN

REACTIONS (2)
  - BLOOD PRESSURE INCREASED [None]
  - MITRAL VALVE STENOSIS [None]
